FAERS Safety Report 5215522-3 (Version None)
Quarter: 2007Q1

REPORT INFORMATION
  Report Type: 
  Country: None (occurrence: None)
  Receive Date: 20070122
  Receipt Date: 20070122
  Transmission Date: 20070707
  Serious: Yes (Life-Threatening)
  Sender: FDA-Public Use
  Company Number: None

PATIENT
  Age: 55 Year
  Sex: Female
  Weight: 53 kg

DRUGS (22)
  1. CYCLOPHOSPHAMIDE [Suspect]
     Indication: NON-SMALL CELL LUNG CANCER STAGE IV
  2. ALLOGENEIC LUNG CA/CD40L VACCINE [Suspect]
     Indication: METASTASES TO BONE
  3. ALLOGENEIC LUNG CA/CD40L VACCINE [Suspect]
     Indication: METASTASES TO LIVER
  4. ATRA (ALL TRANS RETINOIC ACID) [Suspect]
     Indication: METASTASES TO BONE
  5. ATRA (ALL TRANS RETINOIC ACID) [Suspect]
     Indication: METASTASES TO LIVER
  6. ATRA (ALL TRANS RETINOIC ACID) [Suspect]
     Indication: NON-SMALL CELL LUNG CANCER STAGE IV
  7. ADVIL [Concomitant]
  8. COMPAZINE [Concomitant]
  9. M.V.I. [Concomitant]
  10. ALOE VERA POWDER [Concomitant]
  11. VICODIN [Concomitant]
  12. MULTI VITAMIN INFUSION [Concomitant]
  13. MAGNESIUM CHLORIDE [Concomitant]
  14. CALCIUM GLUCONATE [Concomitant]
  15. PYRIDOXINE HCL [Concomitant]
  16. DEXAPANTHENOL [Concomitant]
  17. VITAMIN B COMPLEX CAP [Concomitant]
  18. ASCORBIC ACID [Concomitant]
  19. MULTI-TRACE MINERALS [Concomitant]
  20. CYANOBALAMINE (B 12) [Concomitant]
  21. ZINC SULFATE [Concomitant]
  22. SELENIUM SULFIDE [Concomitant]

REACTIONS (8)
  - CHEST PAIN [None]
  - DISEASE PROGRESSION [None]
  - DYSPNOEA EXERTIONAL [None]
  - FATIGUE [None]
  - JUGULAR VEIN DISTENSION [None]
  - PNEUMONIA [None]
  - SUPERIOR VENA CAVAL OCCLUSION [None]
  - SWELLING FACE [None]
